FAERS Safety Report 10883058 (Version 1)
Quarter: 2015Q1

REPORT INFORMATION
  Report Type: Spontaneous
  Country: US (occurrence: None)
  Receive Date: 20150226
  Receipt Date: 20150226
  Transmission Date: 20150721
  Serious: Yes (Disabling)
  Sender: FDA-Public Use
  Company Number: None

PATIENT
  Age: 52 Year
  Sex: Female
  Weight: 97.98 kg

DRUGS (2)
  1. MULTI VITAMINS [Concomitant]
  2. CIPROFLOXACIN 250 MG [Suspect]
     Active Substance: CIPROFLOXACIN
     Indication: URINARY TRACT INFECTION
     Dosage: 1 PILL TWICE DAILY TAKEN BY MOUTH
     Route: 048
     Dates: start: 20150206, end: 20150210

REACTIONS (5)
  - Insomnia [None]
  - Middle insomnia [None]
  - Neuropathy peripheral [None]
  - Headache [None]
  - Pain [None]

NARRATIVE: CASE EVENT DATE: 20150208
